FAERS Safety Report 8501521 (Version 2)
Quarter: 2013Q2

REPORT INFORMATION
  Report Type: Spontaneous
  Country: US (occurrence: None)
  Receive Date: 20120327
  Receipt Date: 20120709
  Transmission Date: 20140414
  Serious: Yes (Other)
  Sender: FDA-Public Use
  Company Number: PHHY2011US32794

PATIENT
  Age: 62 Year
  Sex: Female
  Weight: 64.4 kg

DRUGS (6)
  1. GLEEVEC [Suspect]
     Route: 048
  2. LYRICA [Concomitant]
  3. NORTRIPTYLINE HYDROCHLORIDE [Concomitant]
  4. FISH OIL (FISH OIL) [Concomitant]
  5. CALCIUM WITH VITAMIN D (CALCIUM PHOSPHATE, CALCIUM SODIUM LACTATE, ERGOCALCIFEROL) [Concomitant]
  6. WELCHOL [Concomitant]

REACTIONS (2)
  - ORAL CANDIDIASIS [None]
  - RASH [None]
